FAERS Safety Report 11801161 (Version 3)
Quarter: 2018Q2

REPORT INFORMATION
  Report Type: Report from Study
  Country: FR (occurrence: FR)
  Receive Date: 20151204
  Receipt Date: 20180614
  Transmission Date: 20180711
  Serious: Yes (Hospitalization)
  Sender: FDA-Public Use
  Company Number: FR-TEVA-614216ACC

PATIENT
  Age: 61 Year
  Sex: Female

DRUGS (4)
  1. BENDAMUSTINE HYDROCHLORIDE. [Suspect]
     Active Substance: BENDAMUSTINE HYDROCHLORIDE
     Indication: LYMPHOMA
     Dosage: TOTAL DOSE 400 MG/M2
     Route: 042
     Dates: start: 20150505, end: 20150506
  2. ARACYTINE [Suspect]
     Active Substance: CYTARABINE
     Indication: LYMPHOMA
     Dosage: TOTAL DOSE 1600 MG/M
     Route: 042
     Dates: start: 20150507, end: 20150510
  3. ALKERAN [Suspect]
     Active Substance: MELPHALAN
     Indication: LYMPHOMA
     Route: 042
     Dates: start: 20150511, end: 20150511
  4. VEPESIDE [Suspect]
     Active Substance: ETOPOSIDE
     Indication: LYMPHOMA
     Dosage: TOTAL DOSE 800 MG/M2
     Route: 042
     Dates: start: 20150507, end: 20150510

REACTIONS (2)
  - Off label use [Unknown]
  - Haematoma [Recovered/Resolved]

NARRATIVE: CASE EVENT DATE: 201505
